FAERS Safety Report 6154998-4 (Version None)
Quarter: 2009Q2

REPORT INFORMATION
  Report Type: 
  Country: None (occurrence: None)
  Receive Date: 20090414
  Receipt Date: 20090406
  Transmission Date: 20091009
  Serious: Yes (Other)
  Sender: FDA-Public Use
  Company Number: US-GENENTECH-280804

PATIENT
  Age: 50 Year
  Sex: Male

DRUGS (2)
  1. BEVACIZUMAB [Suspect]
     Indication: RENAL CELL CARCINOMA
     Dosage: 10 MG/KG, DAYS 1+15 OF A 28 DAY CYCLE
     Route: 042
     Dates: start: 20080715
  2. TEMSIROLIMUS [Suspect]
     Indication: RENAL CELL CARCINOMA
     Dosage: 25 MG, DAYS 1, 8, 15 AND 22 OF A 28 DAY CYCLE
     Route: 042
     Dates: start: 20080715

REACTIONS (1)
  - OSTEONECROSIS [None]
